FAERS Safety Report 17153669 (Version 2)
Quarter: 2019Q4

REPORT INFORMATION
  Report Type: Spontaneous
  Country: US (occurrence: US)
  Receive Date: 20191213
  Receipt Date: 20191221
  Transmission Date: 20200122
  Serious: Yes (Death)
  Sender: FDA-Public Use
  Company Number: US-UNITED THERAPEUTICS-UNT-2019-020758

PATIENT
  Age: 61 Year
  Sex: Male

DRUGS (1)
  1. ORENITRAM [Suspect]
     Active Substance: TREPROSTINIL
     Indication: PRODUCT USED FOR UNKNOWN INDICATION
     Dosage: 0.375 MG, TID
     Route: 048
     Dates: start: 20191004, end: 20191204

REACTIONS (1)
  - Accidental death [Fatal]

NARRATIVE: CASE EVENT DATE: 20191210
